FAERS Safety Report 10088256 (Version 3)
Quarter: 2014Q2

REPORT INFORMATION
  Report Type: Spontaneous
  Country: BR (occurrence: BR)
  Receive Date: 20140421
  Receipt Date: 20140529
  Transmission Date: 20141212
  Serious: Yes (Death, Other)
  Sender: FDA-Public Use
  Company Number: BR-PFIZER INC-2013143562

PATIENT
  Age: 49 Year
  Sex: Male
  Weight: 78 kg

DRUGS (2)
  1. SUTENT [Suspect]
     Indication: RENAL CANCER STAGE IV
     Dosage: 37.5 MG, 1X/DAY
     Route: 048
     Dates: start: 201206
  2. SUTENT [Suspect]
     Dosage: 50 MG DAILY (4 OF 6 WEEKS)
     Route: 048
     Dates: start: 20130214, end: 20131017

REACTIONS (13)
  - Death [Fatal]
  - Odynophagia [Unknown]
  - Decreased appetite [Unknown]
  - Weight decreased [Unknown]
  - Mucosal inflammation [Unknown]
  - Eating disorder [Unknown]
  - Headache [Unknown]
  - Ageusia [Unknown]
  - Dysgeusia [Unknown]
  - Mouth ulceration [Unknown]
  - Skin ulcer [Unknown]
  - Pain in extremity [Unknown]
  - Yellow skin [Unknown]
